FAERS Safety Report 6300250-3 (Version None)
Quarter: 2009Q3

REPORT INFORMATION
  Report Type: 
  Country: None (occurrence: None)
  Receive Date: 20090803
  Receipt Date: 20090720
  Transmission Date: 20100115
  Serious: Yes (Hospitalization)
  Sender: FDA-Public Use
  Company Number: 8049560

PATIENT
  Sex: Female

DRUGS (5)
  1. KEPPRA [Suspect]
  2. SPIRONOLACTONE [Concomitant]
  3. IBESARTAN [Concomitant]
  4. PROPRANOLOL [Concomitant]
  5. AMLODIPINE [Concomitant]

REACTIONS (1)
  - MIGRAINE [None]
